FAERS Safety Report 11612007 (Version 1)
Quarter: 2015Q4

REPORT INFORMATION
  Report Type: Spontaneous
  Country: SE (occurrence: SE)
  Receive Date: 20151008
  Receipt Date: 20151008
  Transmission Date: 20160304
  Serious: Yes (Other)
  Sender: FDA-Public Use
  Company Number: SE-TEVA-599593ISR

PATIENT
  Age: 80 Year
  Sex: Female

DRUGS (2)
  1. ATORVASTATIN [Suspect]
     Active Substance: ATORVASTATIN
  2. TROMBYL [Suspect]
     Active Substance: ASPIRIN

REACTIONS (2)
  - Gastritis [Recovered/Resolved]
  - Hepatic failure [Recovered/Resolved]
